FAERS Safety Report 8412789-5 (Version None)
Quarter: 2012Q2

REPORT INFORMATION
  Report Type: 
  Country: None (occurrence: None)
  Receive Date: 20120531
  Receipt Date: 20120531
  Transmission Date: 20120825
  Serious: Yes (Hospitalization)
  Sender: FDA-Public Use
  Company Number: None

PATIENT
  Age: 63 Year
  Sex: Female
  Weight: 83.4619 kg

DRUGS (1)
  1. BUMEX [Suspect]
     Indication: OEDEMA
     Dosage: 2MG AM 1MG PM
     Dates: start: 20120201, end: 20120524

REACTIONS (6)
  - DEAFNESS [None]
  - VOMITING [None]
  - OTOTOXICITY [None]
  - HYPOAESTHESIA [None]
  - VERTIGO [None]
  - BALANCE DISORDER [None]
